FAERS Safety Report 16435084 (Version 1)
Quarter: 2019Q2

REPORT INFORMATION
  Report Type: Spontaneous
  Country: US (occurrence: US)
  Receive Date: 20190614
  Receipt Date: 20190614
  Transmission Date: 20190711
  Serious: No
  Sender: FDA-Public Use
  Company Number: US-BAUSCH-BL-2019-015649

PATIENT
  Sex: Female
  Weight: 65.83 kg

DRUGS (1)
  1. OMEPRAZOLE/SODIUM BICARBONATE CAPSULES [Suspect]
     Active Substance: OMEPRAZOLE\SODIUM BICARBONATE
     Indication: GASTROOESOPHAGEAL REFLUX DISEASE
     Dosage: 40/1100 MG AT BEDTIME
     Route: 048

REACTIONS (2)
  - Pollakiuria [Unknown]
  - Feeling hot [Unknown]
